FAERS Safety Report 7207423-6 (Version None)
Quarter: 2011Q1

REPORT INFORMATION
  Report Type: 
  Country: None (occurrence: None)
  Receive Date: 20110103
  Receipt Date: 20101218
  Transmission Date: 20110831
  Serious: Yes (Hospitalization, Other)
  Sender: FDA-Public Use
  Company Number: PHHY2010TW86330

PATIENT

DRUGS (7)
  1. MELOXICAM [Suspect]
     Indication: ANALGESIC THERAPY
  2. CHLORZOXAZONE [Suspect]
     Indication: ANALGESIC THERAPY
  3. CEFTAZIDIME [Suspect]
     Dosage: 2 G/8H
  4. TEICOPLANIN [Suspect]
     Dosage: 400 MG/12H FOR THREE DOSES OF LOADING, AND THEN 400 MG QD
  5. VANCOMYCIN [Suspect]
     Dosage: 1 G /12H
  6. MECOBALAMIN [Suspect]
     Indication: ANALGESIC THERAPY
  7. METRONIDAZOLE [Suspect]
     Dosage: 500 MG/6H

REACTIONS (7)
  - NEUTROPENIA [None]
  - C-REACTIVE PROTEIN INCREASED [None]
  - RED BLOOD CELL SEDIMENTATION RATE INCREASED [None]
  - DRUG HYPERSENSITIVITY [None]
  - NEUTROPHIL COUNT DECREASED [None]
  - THROMBOCYTOPENIA [None]
  - HEPATITIS [None]
